FAERS Safety Report 18895886 (Version 1)
Quarter: 2021Q1

REPORT INFORMATION
  Report Type: Spontaneous
  Country: DE (occurrence: DE)
  Receive Date: 20210216
  Receipt Date: 20210216
  Transmission Date: 20210420
  Serious: No
  Sender: FDA-Public Use
  Company Number: DE-ALKEM LABORATORIES LIMITED-DE-ALKEM-2020-07681

PATIENT
  Age: 68 Year
  Sex: Female

DRUGS (3)
  1. PREGABALIN. [Suspect]
     Active Substance: PREGABALIN
     Indication: NEURALGIA
     Dosage: 5 DOSAGE FORM, QD, (EVERY 1 DAY)
     Route: 048
     Dates: start: 20200907, end: 20200915
  2. ANAESTHESULF LOTION [Concomitant]
     Active Substance: POLIDOCANOL
     Indication: HERPES ZOSTER
     Dosage: UNK
     Route: 003
     Dates: start: 20200827, end: 20200915
  3. NOVALGIN [Concomitant]
     Indication: PAIN
     Dosage: 2 DOSAGE FORM, QD, (EVERY 1 DAY)
     Route: 048
     Dates: start: 20200907, end: 20200915

REACTIONS (12)
  - Hypoaesthesia [Unknown]
  - Paraesthesia [Unknown]
  - Chest discomfort [Unknown]
  - Constipation [Not Recovered/Not Resolved]
  - Chills [Recovered/Resolved]
  - Weight decreased [Unknown]
  - Insomnia [Not Recovered/Not Resolved]
  - Condition aggravated [Unknown]
  - Vision blurred [Recovering/Resolving]
  - Back pain [Not Recovered/Not Resolved]
  - Pruritus [Unknown]
  - Myalgia [Not Recovered/Not Resolved]

NARRATIVE: CASE EVENT DATE: 20200908
